FAERS Safety Report 19068686 (Version 1)
Quarter: 2021Q1

REPORT INFORMATION
  Report Type: Other
  Country: DK (occurrence: DK)
  Receive Date: 20210329
  Receipt Date: 20210329
  Transmission Date: 20210420
  Serious: Yes (Life-Threatening, Hospitalization, Disabling)
  Sender: FDA-Public Use
  Company Number: DK-INCYTE CORPORATION-2020IN013383

PATIENT

DRUGS (3)
  1. DEFERASIROX. [Concomitant]
     Active Substance: DEFERASIROX
     Indication: IRON OVERLOAD
     Dosage: 1080 MG, QD (STYRKE: 360 MG)
     Route: 048
     Dates: start: 20190128
  2. JAKAVI [Suspect]
     Active Substance: RUXOLITINIB
     Indication: MYELOPROLIFERATIVE NEOPLASM
     Dosage: 20 MG, QD (STYRKE: 10 MG INITIALT 10 MG DAGLIGT INDTIL 08 OCT 2018)
     Route: 048
     Dates: start: 20180806, end: 20190922
  3. ACETYLSALICYLIC ACID [Concomitant]
     Active Substance: ASPIRIN
     Indication: THROMBOSIS PROPHYLAXIS
     Dosage: 75 MG, QD (STYRKE: 75 MG)
     Route: 048
     Dates: start: 20181203

REACTIONS (4)
  - Necrotising fasciitis staphylococcal [Recovered/Resolved]
  - Mycobacterium avium complex infection [Not Recovered/Not Resolved]
  - Granulomatous lymphadenitis [Unknown]
  - Infection reactivation [Recovering/Resolving]

NARRATIVE: CASE EVENT DATE: 2019
